APPROVED DRUG PRODUCT: INVAGESIC
Active Ingredient: ASPIRIN; CAFFEINE; ORPHENADRINE CITRATE
Strength: 385MG;30MG;25MG
Dosage Form/Route: TABLET;ORAL
Application: A074817 | Product #001
Applicant: CHARTWELL RX SCIENCES LLC
Approved: Nov 27, 1996 | RLD: No | RS: No | Type: DISCN